FAERS Safety Report 4384225-X (Version None)
Quarter: 2004Q2

REPORT INFORMATION
  Report Type: 
  Country: None (occurrence: None)
  Receive Date: 20040624
  Receipt Date: 20040616
  Transmission Date: 20050107
  Serious: Yes (Hospitalization)
  Sender: FDA-Public Use
  Company Number: 200412381FR

PATIENT
  Age: 80 Year
  Sex: Male

DRUGS (4)
  1. KETEK [Suspect]
     Indication: BRONCHITIS
     Route: 048
     Dates: start: 20040401
  2. SIMVASTATIN [Concomitant]
     Route: 048
     Dates: end: 20040504
  3. PRETERAX [Concomitant]
     Indication: HYPERTENSION
     Dates: end: 20040401
  4. MEDIATENSYL [Concomitant]
     Indication: HYPERTENSION
     Route: 048
     Dates: start: 20040401

REACTIONS (16)
  - BIOPSY KIDNEY ABNORMAL [None]
  - BLOOD FIBRINOGEN INCREASED [None]
  - BLOOD PRESSURE SYSTOLIC INCREASED [None]
  - CANDIDIASIS [None]
  - DEHYDRATION [None]
  - DIARRHOEA [None]
  - GLOBULINS INCREASED [None]
  - HAEMATURIA [None]
  - HAEMOGLOBIN DECREASED [None]
  - HYPERGAMMAGLOBULINAEMIA [None]
  - LEUKOCYTOSIS [None]
  - LEUKOCYTURIA [None]
  - PLATELET COUNT INCREASED [None]
  - PROTEINURIA [None]
  - RENAL FAILURE [None]
  - WEIGHT DECREASED [None]
